FAERS Safety Report 7709039-1 (Version None)
Quarter: 2011Q3

REPORT INFORMATION
  Report Type: 
  Country: None (occurrence: None)
  Receive Date: 20110825
  Receipt Date: 20110816
  Transmission Date: 20111222
  Serious: Yes (Death, Life-Threatening, Hospitalization)
  Sender: FDA-Public Use
  Company Number: DE-CELGENEUS-062-21880-11022616

PATIENT
  Age: 74 Year
  Sex: Male
  Weight: 66 kg

DRUGS (10)
  1. NOVAMINSULFON [Concomitant]
     Route: 048
     Dates: start: 20110204
  2. REVLIMID [Suspect]
     Indication: MULTIPLE MYELOMA
     Dosage: 25 MILLIGRAM
     Route: 048
     Dates: start: 20090408, end: 20090723
  3. PEGFILGRASTIM [Concomitant]
     Dosage: 6 MILLIGRAM
     Route: 058
     Dates: start: 20110218, end: 20110218
  4. PALLADONE [Concomitant]
     Route: 048
     Dates: start: 20110113
  5. REVLIMID [Suspect]
     Dosage: 10 MILLIGRAM
     Route: 048
     Dates: start: 20100326
  6. BIPHOSPHONATES [Concomitant]
     Indication: MULTIPLE MYELOMA
     Route: 065
     Dates: start: 20070101
  7. IBANDRONATE SODIUM [Concomitant]
     Dosage: 6 MILLIGRAM
     Route: 041
     Dates: start: 20110215, end: 20110215
  8. INNOHEP [Concomitant]
     Dosage: 20000 IU (INTERNATIONAL UNIT)
     Route: 058
     Dates: start: 20110215
  9. REVLIMID [Suspect]
     Dosage: 15 MILLIGRAM
     Route: 048
     Dates: start: 20090821, end: 20100319
  10. RED BLOOD CELLS [Concomitant]
     Route: 041
     Dates: start: 20110215, end: 20110215

REACTIONS (5)
  - ACUTE PRERENAL FAILURE [None]
  - CARDIAC FAILURE [None]
  - SEPSIS [None]
  - PNEUMONIA [None]
  - PANCYTOPENIA [None]
